FAERS Safety Report 14155018 (Version 1)
Quarter: 2017Q4

REPORT INFORMATION
  Report Type: Spontaneous
  Country: US (occurrence: US)
  Receive Date: 20171103
  Receipt Date: 20171103
  Transmission Date: 20180321
  Serious: No
  Sender: FDA-Public Use
  Company Number: US-ENDO PHARMACEUTICALS INC-2017-002992

PATIENT
  Sex: Female

DRUGS (1)
  1. GLIPIZIDE. [Suspect]
     Active Substance: GLIPIZIDE
     Indication: BLOOD GLUCOSE INCREASED
     Dosage: UNK UNK, UNKNOWN
     Route: 048

REACTIONS (4)
  - Foreign body in respiratory tract [Recovered/Resolved]
  - Dyspnoea [Recovered/Resolved]
  - Product use complaint [Recovered/Resolved]
  - Product size issue [Recovered/Resolved]
